FAERS Safety Report 12041543 (Version 1)
Quarter: 2016Q1

REPORT INFORMATION
  Report Type: Report from Study
  Country: CA (occurrence: CA)
  Receive Date: 20160208
  Receipt Date: 20160208
  Transmission Date: 20160526
  Serious: Yes (Hospitalization, Other)
  Sender: FDA-Public Use
  Company Number: CA-JNJFOC-20151216308

PATIENT
  Age: 66 Year
  Sex: Female
  Weight: 100 kg

DRUGS (1)
  1. REMICADE [Suspect]
     Active Substance: INFLIXIMAB
     Indication: RHEUMATOID ARTHRITIS
     Route: 042
     Dates: start: 200805

REACTIONS (5)
  - Bronchitis [Unknown]
  - Haematemesis [Unknown]
  - Head injury [Unknown]
  - Laryngitis [Unknown]
  - Road traffic accident [Unknown]

NARRATIVE: CASE EVENT DATE: 201511
